FAERS Safety Report 9072686 (Version 1)
Quarter: 2013Q1

REPORT INFORMATION
  Report Type: Report from Study
  Country: US (occurrence: US)
  Receive Date: 20130129
  Receipt Date: 20130129
  Transmission Date: 20140127
  Serious: No
  Sender: FDA-Public Use
  Company Number: US-ABBOTT-12P-163-0920602-00

PATIENT
  Age: 42 Year
  Sex: Female

DRUGS (4)
  1. HUMIRA 40 MG/0.8 ML PEN [Suspect]
     Indication: PSORIASIS
     Dates: start: 20101218, end: 201111
  2. HUMIRA 40 MG/0.8 ML PEN [Suspect]
     Dates: start: 201202
  3. VITAMIN D [Concomitant]
     Indication: VITAMIN D ABNORMAL
     Dosage: 2000 IU DAILY
  4. HYDROCHLOROTHIAZIDE [Concomitant]
     Indication: BLOOD PRESSURE
     Dosage: 25 MG DAILY

REACTIONS (18)
  - Weight increased [Unknown]
  - Injection site pain [Not Recovered/Not Resolved]
  - Injection site reaction [Not Recovered/Not Resolved]
  - Injection site papule [Not Recovered/Not Resolved]
  - Injection site erythema [Not Recovered/Not Resolved]
  - Injection site warmth [Not Recovered/Not Resolved]
  - Psoriasis [Unknown]
  - Psoriasis [Unknown]
  - Pustular psoriasis [Unknown]
  - Inflammation [Unknown]
  - Tendon pain [Unknown]
  - Pustular psoriasis [Unknown]
  - Onychoclasis [Unknown]
  - Skin burning sensation [Unknown]
  - Skin haemorrhage [Unknown]
  - Blood pressure abnormal [Not Recovered/Not Resolved]
  - Injection site erythema [Unknown]
  - Injection site papule [Unknown]
